FAERS Safety Report 9665711 (Version 3)
Quarter: 2013Q4

REPORT INFORMATION
  Report Type: Spontaneous
  Country: JP (occurrence: JP)
  Receive Date: 20131104
  Receipt Date: 20131205
  Transmission Date: 20140711
  Serious: Yes (Other)
  Sender: FDA-Public Use
  Company Number: JP-ABBVIE-12P-087-0929488-00

PATIENT
  Age: 58 Year
  Sex: Male
  Weight: 56 kg

DRUGS (2)
  1. LOPINAVIR/RITONAVIR [Suspect]
     Indication: HIV INFECTION
     Dates: start: 201108
  2. EMTRICITABINE W/TENOFOVIR [Concomitant]
     Indication: HIV INFECTION

REACTIONS (1)
  - Sick sinus syndrome [Recovered/Resolved]
